FAERS Safety Report 12228561 (Version 1)
Quarter: 2016Q1

REPORT INFORMATION
  Report Type: Spontaneous
  Country: US (occurrence: None)
  Receive Date: 20160330
  Receipt Date: 20160330
  Transmission Date: 20160526
  Serious: Yes (Hospitalization)
  Sender: FDA-Public Use
  Company Number: None

PATIENT
  Age: 57 Year
  Sex: Male
  Weight: 75.9 kg

DRUGS (16)
  1. TYLENOL [Concomitant]
     Active Substance: ACETAMINOPHEN
  2. RECTAL SUPP [Concomitant]
  3. LIPITOR [Concomitant]
     Active Substance: ATORVASTATIN CALCIUM
  4. TRAMADOL (ULTRAM) [Concomitant]
  5. AMBIEN [Concomitant]
     Active Substance: ZOLPIDEM TARTRATE
  6. ASPIRIN. [Concomitant]
     Active Substance: ASPIRIN
  7. CIALIS [Concomitant]
     Active Substance: TADALAFIL
  8. BUPROPION-XL (WELLBUTRIN-XL) [Concomitant]
  9. LISINOPRIL (PRINIVIL) [Concomitant]
  10. OMEPRAZOLE (PRILOSEC) [Concomitant]
  11. PROCHLORPERAZINE (COMPAZINE) [Concomitant]
  12. CYCLOBENZAPRINE (FLEXERIL) [Concomitant]
  13. TRAMADOL HCL (TRAMADOL ORAL) [Concomitant]
  14. PEMBROLIZUMAB, 100 MG/ 4ML MERCK [Suspect]
     Active Substance: PEMBROLIZUMAB
     Indication: MESOTHELIOMA
     Route: 041
     Dates: start: 20151014, end: 20160309
  15. ALPRAZOLAM (XANAX) [Concomitant]
  16. METOPROLOL-XL (TOPROL-XL) [Concomitant]

REACTIONS (2)
  - Mental status changes [None]
  - Confusional state [None]

NARRATIVE: CASE EVENT DATE: 20160323
